FAERS Safety Report 18484085 (Version 7)
Quarter: 2025Q2

REPORT INFORMATION
  Report Type: Spontaneous
  Country: ES (occurrence: ES)
  Receive Date: 20201110
  Receipt Date: 20250624
  Transmission Date: 20250716
  Serious: Yes (Hospitalization, Other)
  Sender: AUROBINDO
  Company Number: ES-LESVI-2020075258

PATIENT
  Age: 32 Year
  Sex: Female

DRUGS (13)
  1. AZITHROMYCIN [Interacting]
     Active Substance: AZITHROMYCIN
     Indication: COVID-19
     Dosage: 500 MILLIGRAM, ONCE A DAY
     Route: 065
  2. OMEPRAZOLE [Suspect]
     Active Substance: OMEPRAZOLE
     Indication: Hiatus hernia
     Dosage: 20 MILLIGRAM, TWO TIMES A DAY
     Route: 065
  3. OMEPRAZOLE [Suspect]
     Active Substance: OMEPRAZOLE
     Dosage: 80 MILLIGRAM, ONCE A DAY
     Route: 065
  4. OMEPRAZOLE [Suspect]
     Active Substance: OMEPRAZOLE
     Dosage: 40 MILLIGRAM, ONCE A DAY (20 MG EVERY 12 HOURS)
     Route: 065
  5. CEFDITOREN [Suspect]
     Active Substance: CEFDITOREN
     Indication: COVID-19
     Dosage: 400 MILLIGRAM, TWO TIMES A DAY
     Route: 065
  6. CEFDITOREN [Suspect]
     Active Substance: CEFDITOREN
     Dosage: 800 MILLIGRAM, TWO TIMES A DAY
     Route: 065
  7. CEFDITOREN [Suspect]
     Active Substance: CEFDITOREN
     Dosage: 800 MILLIGRAM, ONCE A DAY
     Route: 065
  8. HYDROXYCHLOROQUINE [Interacting]
     Active Substance: HYDROXYCHLOROQUINE
     Indication: COVID-19
     Dosage: 400 MILLIGRAM, ONCE A DAY, (400 MG LOADING DOSE EVERY 12 HOURS ON THE FIRST DAY)
     Route: 065
  9. HYDROXYCHLOROQUINE [Interacting]
     Active Substance: HYDROXYCHLOROQUINE
     Dosage: 400 MILLIGRAM, TWO TIMES A DAY
     Route: 065
  10. HYDROXYCHLOROQUINE [Interacting]
     Active Substance: HYDROXYCHLOROQUINE
     Dosage: 200 MILLIGRAM, TWO TIMES A DAY
     Route: 065
  11. HYDROXYCHLOROQUINE [Interacting]
     Active Substance: HYDROXYCHLOROQUINE
     Dosage: 800 MILLIGRAM, ONCE A DAY (400 MILLIGRAM, 2X / DAY (EVERY 12 HOURS, LOADING DOSE ON FIRST DAY)
     Route: 065
  12. OMEPRAZOLE [Concomitant]
     Active Substance: OMEPRAZOLE
     Indication: Hiatus hernia
     Dosage: 20 MILLIGRAM, TWO TIMES A DAY
     Route: 065
  13. OMEPRAZOLE [Concomitant]
     Active Substance: OMEPRAZOLE
     Dosage: 40 MILLIGRAM, ONCE A DAY
     Route: 065

REACTIONS (10)
  - Cardiac failure [Unknown]
  - Cardiac failure chronic [Unknown]
  - Dyspnoea exertional [Unknown]
  - COVID-19 [Unknown]
  - Extrasystoles [Recovered/Resolved]
  - Tachycardia [Recovered/Resolved]
  - Off label use [Unknown]
  - Mitral valve incompetence [Unknown]
  - Drug interaction [Unknown]
  - Product use in unapproved indication [Unknown]
